FAERS Safety Report 4498640-7 (Version None)
Quarter: 2004Q3

REPORT INFORMATION
  Report Type: 
  Country: None (occurrence: None)
  Receive Date: 20040927
  Receipt Date: 20040615
  Transmission Date: 20050211
  Serious: No
  Sender: FDA-Public Use
  Company Number: USA040670175

PATIENT
  Age: 13 Year
  Sex: Male
  Weight: 50 kg

DRUGS (3)
  1. STRATTERA [Suspect]
     Indication: ATTENTION DEFICIT/HYPERACTIVITY DISORDER
     Dosage: 80 MG
     Dates: start: 20030101
  2. TRILEPTAL [Concomitant]
  3. SINGULAIR [Concomitant]

REACTIONS (4)
  - BLOOD GROWTH HORMONE [None]
  - GROWTH RETARDATION [None]
  - PRESCRIBED OVERDOSE [None]
  - WEIGHT DECREASED [None]
